FAERS Safety Report 15907932 (Version 1)
Quarter: 2019Q1

REPORT INFORMATION
  Report Type: Spontaneous
  Country: CA (occurrence: CA)
  Receive Date: 20190204
  Receipt Date: 20190204
  Transmission Date: 20190417
  Serious: Yes (Other)
  Sender: FDA-Public Use
  Company Number: CA-AMREGENT-20181805

PATIENT
  Age: 46 Year
  Sex: Female

DRUGS (2)
  1. VENOFER [Suspect]
     Active Substance: IRON SUCROSE
     Dosage: 300 MG /250 MG NS
     Route: 042
     Dates: start: 20180924, end: 20180924
  2. IBUPROFEN. [Concomitant]
     Active Substance: IBUPROFEN
     Dosage: UNKNOWN AS NEEDED
     Route: 065

REACTIONS (10)
  - Dizziness [Unknown]
  - Blood pressure systolic decreased [Unknown]
  - Peripheral swelling [Unknown]
  - Cardiac arrest [Unknown]
  - Product quality issue [Unknown]
  - Resuscitation [Unknown]
  - Syncope [Unknown]
  - Urticaria [Unknown]
  - Blood pressure immeasurable [Unknown]
  - Depressed level of consciousness [Unknown]

NARRATIVE: CASE EVENT DATE: 20180924
